FAERS Safety Report 25526635 (Version 1)
Quarter: 2025Q3

REPORT INFORMATION
  Report Type: Spontaneous
  Country: GB (occurrence: GB)
  Receive Date: 20250707
  Receipt Date: 20250707
  Transmission Date: 20251021
  Serious: Yes (Death)
  Sender: MERCK SHARP & DOHME LLC
  Company Number: GB-009507513-2304014

PATIENT
  Age: 87 Year
  Sex: Male

DRUGS (1)
  1. PEMBROLIZUMAB [Suspect]
     Active Substance: PEMBROLIZUMAB
     Indication: Malignant melanoma
     Dosage: 6 WEEKLY FORMULATION, FIRST CYCLE
     Dates: start: 2025

REACTIONS (2)
  - Rhabdomyolysis [Fatal]
  - Myocarditis [Fatal]

NARRATIVE: CASE EVENT DATE: 20250101
